FAERS Safety Report 5662869-2 (Version None)
Quarter: 2008Q1

REPORT INFORMATION
  Report Type: 
  Country: None (occurrence: None)
  Receive Date: 20080311
  Receipt Date: 20080311
  Transmission Date: 20080703
  Serious: Yes (Hospitalization)
  Sender: FDA-Public Use
  Company Number: None

PATIENT
  Age: 83 Year
  Sex: Female

DRUGS (1)
  1. ZYVOX [Suspect]
     Dosage: 600MG BID PO
     Route: 048

REACTIONS (7)
  - ATRIAL FIBRILLATION [None]
  - CARDIAC FAILURE CONGESTIVE [None]
  - OSTEOMYELITIS CHRONIC [None]
  - STAPHYLOCOCCAL INFECTION [None]
  - THROMBOCYTOPENIA [None]
  - URINARY FISTULA [None]
  - URINARY TRACT INFECTION ENTEROCOCCAL [None]
